FAERS Safety Report 19307181 (Version 1)
Quarter: 2021Q2

REPORT INFORMATION
  Report Type: Spontaneous
  Country: US (occurrence: US)
  Receive Date: 20210526
  Receipt Date: 20210526
  Transmission Date: 20210717
  Serious: Yes (Hospitalization, Other)
  Sender: FDA-Public Use
  Company Number: US-ALS-000267

PATIENT
  Age: 34 Year
  Sex: Male

DRUGS (3)
  1. QUETIAPINE. [Suspect]
     Active Substance: QUETIAPINE
     Indication: SCHIZOAFFECTIVE DISORDER
     Dosage: 800 MG NIGHTLY
     Route: 065
  2. LITHIUM. [Suspect]
     Active Substance: LITHIUM
     Indication: SCHIZOAFFECTIVE DISORDER
     Dosage: 600 MG NIGHTLY
     Route: 065
  3. FLUPHENAZINE [Suspect]
     Active Substance: FLUPHENAZINE
     Indication: SCHIZOAFFECTIVE DISORDER
     Dosage: 10 MG 3 TIMES DAILY
     Route: 065

REACTIONS (7)
  - Priapism [Unknown]
  - Splenic injury [Unknown]
  - Aspiration [Unknown]
  - Circumcision [Unknown]
  - Splenorenal shunt procedure [Unknown]
  - Thalassaemia [Unknown]
  - Acute psychosis [Unknown]

NARRATIVE: CASE EVENT DATE: 201203
